FAERS Safety Report 13536331 (Version 4)
Quarter: 2017Q2

REPORT INFORMATION
  Report Type: Spontaneous
  Country: US (occurrence: US)
  Receive Date: 20170511
  Receipt Date: 20170608
  Transmission Date: 20170830
  Serious: No
  Sender: FDA-Public Use
  Company Number: US-PFIZER INC-2017205288

PATIENT
  Age: 34 Year
  Sex: Female

DRUGS (1)
  1. LYRICA [Suspect]
     Active Substance: PREGABALIN
     Indication: NEUROPATHY PERIPHERAL
     Dosage: 300 MG, TWICE DAILY (MORNING DOSE AT 7-8AM)
     Route: 048

REACTIONS (4)
  - Foreign body [Unknown]
  - Dysphagia [Unknown]
  - Product use in unapproved indication [Unknown]
  - Drug effect incomplete [Unknown]
